FAERS Safety Report 11045110 (Version 1)
Quarter: 2015Q2

REPORT INFORMATION
  Report Type: Spontaneous
  Country: JP (occurrence: JP)
  Receive Date: 20150417
  Receipt Date: 20150417
  Transmission Date: 20150821
  Serious: Yes (Other)
  Sender: FDA-Public Use
  Company Number: PHJP2015JP002255

PATIENT
  Age: 73 Year
  Sex: Male
  Weight: 61 kg

DRUGS (2)
  1. ZOMETA [Suspect]
     Active Substance: ZOLEDRONIC ACID
     Indication: METASTASES TO BONE
     Dosage: 4 MG, QMO
     Route: 041
     Dates: start: 20120516, end: 20150116
  2. AMOPICILLIN [Concomitant]
     Indication: PRODUCT USED FOR UNKNOWN INDICATION
     Dosage: UNK
     Route: 048
     Dates: start: 20150108, end: 20150112

REACTIONS (9)
  - Hypoaesthesia [Unknown]
  - Soft tissue infection [Recovering/Resolving]
  - Pain in extremity [Unknown]
  - Osteomyelitis [Recovering/Resolving]
  - Gingivitis [Unknown]
  - Swelling [Unknown]
  - Gingival swelling [Recovering/Resolving]
  - Gingival abscess [Recovering/Resolving]
  - Erythema [Unknown]

NARRATIVE: CASE EVENT DATE: 201411
